FAERS Safety Report 8832336 (Version 1)
Quarter: 2012Q4

REPORT INFORMATION
  Report Type: 
  Country: CA (occurrence: CA)
  Receive Date: 20121009
  Receipt Date: 20121009
  Transmission Date: 20130627
  Serious: Yes (Other)
  Sender: FDA-Public Use
  Company Number: PHHY2008CA044454

PATIENT

DRUGS (2)
  1. SANDOSTATIN LAR [Suspect]
     Dates: start: 20060127
  2. HYDROMORPHONE [Concomitant]

REACTIONS (4)
  - Blood pressure diastolic decreased [Unknown]
  - Oedema peripheral [Unknown]
  - Gastrointestinal motility disorder [Unknown]
  - Abdominal distension [Unknown]
